FAERS Safety Report 7906792-9 (Version None)
Quarter: 2011Q4

REPORT INFORMATION
  Report Type: 
  Country: None (occurrence: None)
  Receive Date: 20111110
  Receipt Date: 20111108
  Transmission Date: 20120403
  Serious: Yes (Death, Other)
  Sender: FDA-Public Use
  Company Number: US-JNJFOC-20110103783

PATIENT
  Sex: Female
  Weight: 52.16 kg

DRUGS (8)
  1. MIRTAZAPINE [Concomitant]
     Route: 065
  2. QUETIAPINE [Concomitant]
     Route: 065
  3. CAFFEINE CITRATE [Concomitant]
     Route: 065
  4. NICOTINE [Concomitant]
     Route: 065
  5. ALPRAZOLAM [Concomitant]
     Route: 065
  6. DURAGESIC-100 [Suspect]
     Indication: PAIN
     Route: 062
  7. DIPHENHYDRAMINE HCL [Concomitant]
     Route: 065
  8. LAMOTRIGINE [Concomitant]
     Route: 065

REACTIONS (3)
  - TOXICITY TO VARIOUS AGENTS [None]
  - WRONG TECHNIQUE IN DRUG USAGE PROCESS [None]
  - DRUG INEFFECTIVE [None]
